FAERS Safety Report 10720688 (Version 3)
Quarter: 2015Q3

REPORT INFORMATION
  Report Type: Report from Study
  Country: BR (occurrence: BR)
  Receive Date: 20150119
  Receipt Date: 20150709
  Transmission Date: 20151125
  Serious: Yes (Other)
  Sender: FDA-Public Use
  Company Number: PHHY2015BR005064

PATIENT
  Sex: Male
  Weight: 54 kg

DRUGS (2)
  1. GILENYA [Suspect]
     Active Substance: FINGOLIMOD HYDROCHLORIDE
     Indication: MULTIPLE SCLEROSIS
     Dosage: 0.5 MG, QD
     Route: 065
     Dates: start: 20141209
  2. FAMPYRA [Concomitant]
     Active Substance: DALFAMPRIDINE
     Indication: MUSCLE SPASTICITY
     Dosage: 2 DF, QD
     Route: 048
     Dates: start: 201408

REACTIONS (8)
  - Blood thyroid stimulating hormone increased [Recovered/Resolved]
  - Pain [Recovered/Resolved]
  - Asthenia [Recovered/Resolved]
  - Headache [Recovered/Resolved]
  - Insomnia [Not Recovered/Not Resolved]
  - Head discomfort [Recovered/Resolved]
  - Eyelid oedema [Recovered/Resolved]
  - Malaise [Recovered/Resolved]

NARRATIVE: CASE EVENT DATE: 2014
